FAERS Safety Report 7703786-3 (Version None)
Quarter: 2011Q3

REPORT INFORMATION
  Report Type: 
  Country: None (occurrence: None)
  Receive Date: 20110823
  Receipt Date: 20110815
  Transmission Date: 20111222
  Serious: Yes (Other)
  Sender: FDA-Public Use
  Company Number: US-US-EMD SERONO, INC.-7066261

PATIENT
  Sex: Female

DRUGS (4)
  1. REBIF [Suspect]
     Indication: PRODUCT USED FOR UNKNOWN INDICATION
     Route: 058
     Dates: start: 20110608
  2. REBIF [Suspect]
     Route: 058
     Dates: start: 20110615, end: 20110615
  3. IBUPROFEN [Concomitant]
     Indication: PREMEDICATION
  4. REBIF [Suspect]
     Route: 058

REACTIONS (7)
  - HAEMOGLOBIN DECREASED [None]
  - DEPRESSION [None]
  - INJECTION SITE PAIN [None]
  - DRY MOUTH [None]
  - OEDEMA PERIPHERAL [None]
  - PNEUMONIA [None]
  - INFLUENZA LIKE ILLNESS [None]
